FAERS Safety Report 21896161 (Version 1)
Quarter: 2023Q1

REPORT INFORMATION
  Report Type: Spontaneous
  Country: US (occurrence: US)
  Receive Date: 20230123
  Receipt Date: 20230123
  Transmission Date: 20230418
  Serious: Yes (Hospitalization, Other)
  Sender: FDA-Public Use
  Company Number: US-009507513-2301USA006474

PATIENT
  Age: 55 Year
  Sex: Female

DRUGS (1)
  1. KEYTRUDA [Suspect]
     Active Substance: PEMBROLIZUMAB
     Indication: Extraskeletal myxoid chondrosarcoma
     Dosage: UNK, ONCE

REACTIONS (4)
  - Encephalitis autoimmune [Unknown]
  - Type 1 diabetes mellitus [Unknown]
  - Autoimmune thyroiditis [Unknown]
  - Product use in unapproved indication [Unknown]
